FAERS Safety Report 23665868 (Version 1)
Quarter: 2024Q1

REPORT INFORMATION
  Report Type: Spontaneous
  Country: US (occurrence: None)
  Receive Date: 20240323
  Receipt Date: 20240323
  Transmission Date: 20240409
  Serious: No
  Sender: FDA-Public Use
  Company Number: 2024A065487

PATIENT
  Sex: Female
  Weight: 76.2 kg

DRUGS (1)
  1. FASLODEX [Suspect]
     Active Substance: FULVESTRANT
     Route: 030

REACTIONS (3)
  - Cardiac discomfort [Unknown]
  - Tongue pruritus [Unknown]
  - Flushing [Unknown]

NARRATIVE: CASE EVENT DATE: 20220101
